FAERS Safety Report 6586911-X (Version None)
Quarter: 2010Q1

REPORT INFORMATION
  Report Type: 
  Country: None (occurrence: None)
  Receive Date: 20100217
  Receipt Date: 20090506
  Transmission Date: 20100710
  Serious: Yes (Hospitalization)
  Sender: FDA-Public Use
  Company Number: US-ALLERGAN-0901862US

PATIENT
  Age: 85 Year
  Sex: Male
  Weight: 53.741 kg

DRUGS (6)
  1. BOTOX [Suspect]
     Indication: TORTICOLLIS
     Dosage: 120 UNITS, SINGLE
     Route: 030
     Dates: start: 20090116, end: 20090116
  2. VITAMINS NOS [Concomitant]
  3. SINEMET [Concomitant]
     Indication: PARKINSON'S DISEASE
     Route: 048
  4. ACTONEL [Concomitant]
  5. SANCTURA [Concomitant]
  6. ASPIRIN [Concomitant]

REACTIONS (1)
  - DYSPHAGIA [None]
